FAERS Safety Report 6576224-4 (Version None)
Quarter: 2010Q1

REPORT INFORMATION
  Report Type: 
  Country: None (occurrence: None)
  Receive Date: 20100209
  Receipt Date: 20100201
  Transmission Date: 20100710
  Serious: Yes (Hospitalization)
  Sender: FDA-Public Use
  Company Number: TR-ELI_LILLY_AND_COMPANY-TR201002001054

PATIENT
  Sex: Male

DRUGS (5)
  1. HUMALOG [Suspect]
     Indication: DIABETES MELLITUS
     Dosage: 10 U, EACH MORNING
     Route: 058
  2. HUMALOG [Suspect]
     Dosage: 10 U, EACH NOON
     Route: 058
  3. HUMALOG [Suspect]
     Dosage: 10 U, EACH EVENING
     Route: 058
  4. INSULIN GLARGINE [Concomitant]
     Dosage: 16 U, EACH EVENING
     Route: 065
  5. ANTIHYPERTENSIVES [Concomitant]
     Indication: HYPERTENSION
     Dosage: UNK, 2/D

REACTIONS (1)
  - OEDEMA PERIPHERAL [None]
